FAERS Safety Report 13073455 (Version 1)
Quarter: 2016Q4

REPORT INFORMATION
  Report Type: Report from Study
  Country: None (occurrence: US)
  Receive Date: 20161229
  Receipt Date: 20161229
  Transmission Date: 20170207
  Serious: Yes (Other)
  Sender: FDA-Public Use
  Company Number: US-ABBVIE-16K-163-1820443-00

PATIENT
  Age: 66 Year
  Sex: Male

DRUGS (1)
  1. HUMIRA [Suspect]
     Active Substance: ADALIMUMAB
     Indication: PSORIATIC ARTHROPATHY
     Route: 058

REACTIONS (4)
  - Optic nerve injury [Recovering/Resolving]
  - Cardiac disorder [Unknown]
  - Diabetes mellitus [Recovering/Resolving]
  - Salmonellosis [Recovering/Resolving]

NARRATIVE: CASE EVENT DATE: 201610
